FAERS Safety Report 9718599 (Version 2)
Quarter: 2015Q1

REPORT INFORMATION
  Report Type: Spontaneous
  Country: US (occurrence: US)
  Receive Date: 20131125
  Receipt Date: 20150116
  Transmission Date: 20150721
  Serious: Yes (Other)
  Sender: FDA-Public Use
  Company Number: US-VIVUS-2012V1000306

PATIENT
  Age: 31 Year
  Sex: Female
  Weight: 96.7 kg

DRUGS (5)
  1. SPIRONOLACTONE. [Concomitant]
     Active Substance: SPIRONOLACTONE
     Indication: POLYCYSTIC OVARIES
     Dates: start: 201212, end: 20121219
  2. WALMART GENERIC WOMEN^S MULTIVITAMIN [Concomitant]
     Indication: VITAMIN SUPPLEMENTATION
  3. QSYMIA [Suspect]
     Active Substance: PHENTERMINE HYDROCHLORIDE\TOPIRAMATE
     Indication: WEIGHT DECREASED
     Route: 048
     Dates: start: 201212, end: 20121214
  4. METFORMIN [Concomitant]
     Active Substance: METFORMIN HYDROCHLORIDE
     Indication: POLYCYSTIC OVARIES
     Dates: start: 201212
  5. OMEGA-3 ACIDS [Concomitant]
     Active Substance: OMEGA-3 FATTY ACIDS
     Indication: BLOOD GLUCOSE ABNORMAL
     Dates: start: 201212

REACTIONS (7)
  - Mood swings [Recovered/Resolved]
  - Anxiety [Recovered/Resolved]
  - Panic attack [Recovered/Resolved]
  - Crying [Recovered/Resolved]
  - Pregnancy [None]
  - Abortion spontaneous [Unknown]
  - Emotional distress [Recovered/Resolved]

NARRATIVE: CASE EVENT DATE: 201212
